FAERS Safety Report 20090965 (Version 1)
Quarter: 2021Q4

REPORT INFORMATION
  Report Type: Spontaneous
  Country: US (occurrence: US)
  Receive Date: 20211119
  Receipt Date: 20211119
  Transmission Date: 20220303
  Serious: Yes (Other)
  Sender: FDA-Public Use
  Company Number: US-BRACCO-2021US04952

PATIENT
  Age: 46 Year
  Sex: Female

DRUGS (2)
  1. BARIUM SULFATE [Suspect]
     Active Substance: BARIUM SULFATE
     Indication: Barium swallow
     Dosage: UNK
     Route: 048
     Dates: start: 20211115, end: 20211115
  2. BARIUM SULFATE [Suspect]
     Active Substance: BARIUM SULFATE
     Indication: Barium swallow
     Dosage: UNK
     Dates: start: 20211115, end: 20211115

REACTIONS (3)
  - Seizure [Recovered/Resolved]
  - Unresponsive to stimuli [Recovered/Resolved]
  - Swollen tongue [Recovered/Resolved]

NARRATIVE: CASE EVENT DATE: 20211115
